FAERS Safety Report 14336942 (Version 1)
Quarter: 2017Q4

REPORT INFORMATION
  Report Type: Spontaneous
  Country: US (occurrence: US)
  Receive Date: 20171228
  Receipt Date: 20171228
  Transmission Date: 20180321
  Serious: Yes (Hospitalization, Disabling)
  Sender: FDA-Public Use
  Company Number: None

PATIENT
  Age: 68 Year
  Sex: Female
  Weight: 65.25 kg

DRUGS (9)
  1. ATORVISTATIN [Concomitant]
  2. MULTI-VITAMIN [Concomitant]
     Active Substance: .ALPHA.-TOCOPHEROL ACETATE, DL-\ASCORBIC ACID\CYANOCOBALAMIN\FLUORIDE ION\FOLIC ACID\NIACIN\PYRIDOXINE\RIBOFLAVIN\THIAMINE\VITAMIN A\VITAMIN D
  3. DIAZEPAM 5MG [Suspect]
     Active Substance: DIAZEPAM
     Indication: ANXIETY
     Dosage: ?          QUANTITY:60 TABLET(S);?
     Route: 048
  4. RYTARY [Concomitant]
     Active Substance: CARBIDOPA\LEVODOPA
  5. VITAMIN D3 [Concomitant]
     Active Substance: CHOLECALCIFEROL
  6. KLONOPIN [Suspect]
     Active Substance: CLONAZEPAM
     Indication: ANXIETY
     Dosage: ?          QUANTITY:60 TABLET(S);?
     Route: 048
     Dates: end: 20171031
  7. CLOPIDOGREL BISULFATE. [Concomitant]
     Active Substance: CLOPIDOGREL BISULFATE
  8. ECOTRIN [Concomitant]
     Active Substance: ASPIRIN
  9. THYROXINE [Concomitant]
     Active Substance: LEVOTHYROXINE

REACTIONS (17)
  - Dyspnoea [None]
  - Withdrawal syndrome [None]
  - Anxiety [None]
  - Weight decreased [None]
  - Myocardial infarction [None]
  - Insomnia [None]
  - Fear [None]
  - Orthostatic hypertension [None]
  - Tremor [None]
  - Panic attack [None]
  - Nausea [None]
  - Muscle spasms [None]
  - Headache [None]
  - Gastric disorder [None]
  - Chills [None]
  - Fatigue [None]
  - Phobia [None]

NARRATIVE: CASE EVENT DATE: 20170921
